FAERS Safety Report 21966987 (Version 1)
Quarter: 2023Q1

REPORT INFORMATION
  Report Type: Other
  Country: PL (occurrence: PL)
  Receive Date: 20230208
  Receipt Date: 20230208
  Transmission Date: 20230418
  Serious: Yes (Other)
  Sender: FDA-Public Use
  Company Number: PL-BoehringerIngelheim-2023-BI-215853

PATIENT
  Age: 68 Year
  Sex: Male

DRUGS (2)
  1. ALTEPLASE [Suspect]
     Active Substance: ALTEPLASE
     Indication: Peripheral ischaemia
     Dosage: 1.0 MG/H
     Route: 065
  2. ALTEPLASE [Suspect]
     Active Substance: ALTEPLASE
     Dosage: 10. MG/H
     Route: 065

REACTIONS (2)
  - Acute kidney injury [Unknown]
  - Post procedural haematuria [Unknown]
